FAERS Safety Report 13609953 (Version 3)
Quarter: 2017Q2

REPORT INFORMATION
  Report Type: Report from Study
  Country: HU (occurrence: HU)
  Receive Date: 20170603
  Receipt Date: 20170623
  Transmission Date: 20170830
  Serious: Yes (Life-Threatening, Other)
  Sender: FDA-Public Use
  Company Number: HU-AMGEN-HUNNI2017084556

PATIENT
  Age: 58 Year
  Sex: Female

DRUGS (1)
  1. ENBREL [Suspect]
     Active Substance: ETANERCEPT
     Indication: ANKYLOSING SPONDYLITIS
     Dosage: 50 MG, WEEKLY 1X, INJECTION
     Route: 058
     Dates: start: 20140901, end: 20170520

REACTIONS (4)
  - Pulmonary mass [Not Recovered/Not Resolved]
  - Injection site inflammation [Recovered/Resolved]
  - Upper respiratory tract infection [Recovered/Resolved]
  - Lung neoplasm malignant [Not Recovered/Not Resolved]

NARRATIVE: CASE EVENT DATE: 20140901
